FAERS Safety Report 9231381 (Version 2)
Quarter: 2013Q2

REPORT INFORMATION
  Report Type: Spontaneous
  Country: BR (occurrence: BR)
  Receive Date: 20130415
  Receipt Date: 20130422
  Transmission Date: 20140414
  Serious: Yes (Hospitalization)
  Sender: FDA-Public Use
  Company Number: BR-ASTRAZENECA-2013SE22912

PATIENT
  Age: 47 Year
  Sex: Male

DRUGS (4)
  1. BRILINTA [Suspect]
     Route: 048
  2. ASA [Concomitant]
  3. UNSPECIFIED STATIN [Concomitant]
  4. UNSPECIFIED BETA-BLOCKER [Concomitant]

REACTIONS (2)
  - Myocardial infarction [Recovered/Resolved]
  - Thrombosis in device [Recovered/Resolved]
